FAERS Safety Report 6405453-5 (Version None)
Quarter: 2009Q4

REPORT INFORMATION
  Report Type: 
  Country: None (occurrence: None)
  Receive Date: 20091019
  Receipt Date: 20091008
  Transmission Date: 20100525
  Serious: Yes (Other)
  Sender: FDA-Public Use
  Company Number: US-ELI_LILLY_AND_COMPANY-US200910002542

PATIENT
  Sex: Female

DRUGS (7)
  1. ALIMTA [Suspect]
     Indication: LUNG ADENOCARCINOMA METASTATIC
     Dosage: 700 MG, EVERY 21 DAYS
     Route: 042
     Dates: start: 20090723, end: 20090903
  2. CISPLATIN [Concomitant]
     Indication: LUNG CARCINOMA CELL TYPE UNSPECIFIED STAGE 0
     Dosage: 75 MG/M2, EVERY 21 DAYS
     Dates: start: 20090723
  3. DEXAMETHASONE [Concomitant]
     Dosage: 4 MG, UNK
     Route: 048
     Dates: start: 20090722
  4. FOLIC ACID [Concomitant]
     Dosage: 1 MG, UNK
     Route: 048
     Dates: start: 20090709
  5. ALTACE [Concomitant]
     Dosage: 10 MG, UNK
  6. TRAMADOL [Concomitant]
     Dosage: 50 MG, UNK
  7. NEULASTA [Concomitant]
     Dates: start: 20090814

REACTIONS (11)
  - ANAEMIA [None]
  - ARTHRALGIA [None]
  - ASTHENIA [None]
  - DEHYDRATION [None]
  - DIARRHOEA [None]
  - DYSPHAGIA [None]
  - HYPOPHAGIA [None]
  - NAUSEA [None]
  - NEUTROPENIA [None]
  - VOMITING [None]
  - WEIGHT DECREASED [None]
